FAERS Safety Report 21207922 (Version 1)
Quarter: 2022Q3

REPORT INFORMATION
  Report Type: Spontaneous
  Country: CN (occurrence: CN)
  Receive Date: 20220812
  Receipt Date: 20220812
  Transmission Date: 20221027
  Serious: Yes (Hospitalization, Other)
  Sender: FDA-Public Use
  Company Number: CN-GLAXOSMITHKLINE-CN2022APC117102

PATIENT

DRUGS (1)
  1. FLUTICASONE PROPIONATE [Suspect]
     Active Substance: FLUTICASONE PROPIONATE
     Indication: Cough variant asthma
     Dosage: 1 PUFF(S), BID 125 UG
     Route: 055
     Dates: start: 202112, end: 202204

REACTIONS (10)
  - Arrhythmia [Unknown]
  - Sinus tachycardia [Unknown]
  - Stomatitis [Recovered/Resolved]
  - Nasopharyngitis [Unknown]
  - Tremor [Unknown]
  - Overdose [Unknown]
  - Dyspnoea [Not Recovered/Not Resolved]
  - Heart rate increased [Not Recovered/Not Resolved]
  - Product use in unapproved indication [Unknown]
  - Incorrect dose administered [Unknown]
